FAERS Safety Report 8049321-4 (Version None)
Quarter: 2012Q1

REPORT INFORMATION
  Report Type: 
  Country: None (occurrence: None)
  Receive Date: 20120117
  Receipt Date: 20120110
  Transmission Date: 20120608
  Serious: Yes (Hospitalization)
  Sender: FDA-Public Use
  Company Number: TW-JNJFOC-20120104375

PATIENT
  Age: 34 Year
  Sex: Male

DRUGS (4)
  1. PALIPERIDONE [Suspect]
     Route: 048
  2. ATENOLOL [Concomitant]
     Indication: HEADACHE
     Route: 048
  3. PALIPERIDONE [Suspect]
     Indication: SCHIZOPHRENIA
     Route: 048
  4. SIMVASTATIN [Concomitant]
     Indication: HEADACHE
     Route: 048

REACTIONS (2)
  - RENAL FAILURE ACUTE [None]
  - OVERDOSE [None]
